FAERS Safety Report 21763648 (Version 1)
Quarter: 2022Q4

REPORT INFORMATION
  Report Type: Spontaneous
  Country: US (occurrence: US)
  Receive Date: 20221222
  Receipt Date: 20221222
  Transmission Date: 20230113
  Serious: Yes (Other)
  Sender: FDA-Public Use
  Company Number: US-BRISTOL-MYERS SQUIBB COMPANY-2022-155105

PATIENT
  Age: 79 Year
  Sex: Male
  Weight: 54 kg

DRUGS (62)
  1. POMALYST [Suspect]
     Active Substance: POMALIDOMIDE
     Indication: Plasma cell myeloma
     Route: 048
     Dates: start: 20200406
  2. POMALYST [Suspect]
     Active Substance: POMALIDOMIDE
     Route: 048
     Dates: start: 20200521, end: 20200617
  3. POMALYST [Suspect]
     Active Substance: POMALIDOMIDE
     Route: 048
     Dates: start: 20200617, end: 20200715
  4. POMALYST [Suspect]
     Active Substance: POMALIDOMIDE
     Route: 048
     Dates: start: 20200715, end: 20200811
  5. POMALYST [Suspect]
     Active Substance: POMALIDOMIDE
     Route: 048
     Dates: start: 20200811, end: 20200908
  6. POMALYST [Suspect]
     Active Substance: POMALIDOMIDE
     Route: 048
     Dates: start: 20200908, end: 20201010
  7. POMALYST [Suspect]
     Active Substance: POMALIDOMIDE
     Route: 048
     Dates: start: 20201010, end: 20201106
  8. POMALYST [Suspect]
     Active Substance: POMALIDOMIDE
     Route: 048
     Dates: start: 20201106, end: 20201204
  9. POMALYST [Suspect]
     Active Substance: POMALIDOMIDE
     Route: 048
     Dates: start: 20201204, end: 20201229
  10. POMALYST [Suspect]
     Active Substance: POMALIDOMIDE
     Route: 048
     Dates: start: 20201229, end: 20210130
  11. POMALYST [Suspect]
     Active Substance: POMALIDOMIDE
     Route: 048
     Dates: start: 20210130, end: 20210227
  12. POMALYST [Suspect]
     Active Substance: POMALIDOMIDE
     Route: 048
     Dates: start: 20210227, end: 20210506
  13. POMALYST [Suspect]
     Active Substance: POMALIDOMIDE
     Route: 048
     Dates: start: 20210506, end: 20210530
  14. POMALYST [Suspect]
     Active Substance: POMALIDOMIDE
     Route: 048
     Dates: start: 20210506, end: 20210606
  15. POMALYST [Suspect]
     Active Substance: POMALIDOMIDE
     Route: 048
     Dates: start: 20210606, end: 20210629
  16. POMALYST [Suspect]
     Active Substance: POMALIDOMIDE
     Route: 048
     Dates: start: 20210606, end: 20210629
  17. POMALYST [Suspect]
     Active Substance: POMALIDOMIDE
     Route: 048
     Dates: start: 20210629, end: 20210730
  18. POMALYST [Suspect]
     Active Substance: POMALIDOMIDE
     Route: 048
     Dates: start: 20210730, end: 20210823
  19. POMALYST [Suspect]
     Active Substance: POMALIDOMIDE
     Route: 048
     Dates: start: 20210823, end: 20210923
  20. POMALYST [Suspect]
     Active Substance: POMALIDOMIDE
     Route: 048
     Dates: start: 20210923, end: 20211022
  21. POMALYST [Suspect]
     Active Substance: POMALIDOMIDE
     Route: 048
     Dates: start: 20211022, end: 20211118
  22. POMALYST [Suspect]
     Active Substance: POMALIDOMIDE
     Route: 048
     Dates: start: 20211118, end: 20211214
  23. POMALYST [Suspect]
     Active Substance: POMALIDOMIDE
     Route: 048
     Dates: start: 20211214, end: 20220111
  24. POMALYST [Suspect]
     Active Substance: POMALIDOMIDE
     Route: 048
     Dates: start: 20220111, end: 20220301
  25. POMALYST [Suspect]
     Active Substance: POMALIDOMIDE
     Route: 048
     Dates: start: 20220301, end: 20220331
  26. POMALYST [Suspect]
     Active Substance: POMALIDOMIDE
     Route: 048
     Dates: start: 20220301, end: 20220331
  27. POMALYST [Suspect]
     Active Substance: POMALIDOMIDE
     Route: 048
     Dates: start: 20220331, end: 20220428
  28. POMALYST [Suspect]
     Active Substance: POMALIDOMIDE
     Route: 048
     Dates: start: 20220428, end: 20220527
  29. POMALYST [Suspect]
     Active Substance: POMALIDOMIDE
     Route: 048
     Dates: start: 20220527, end: 20220623
  30. POMALYST [Suspect]
     Active Substance: POMALIDOMIDE
     Route: 048
     Dates: start: 20220623, end: 20220714
  31. POMALYST [Suspect]
     Active Substance: POMALIDOMIDE
     Route: 048
     Dates: start: 20220714, end: 20221104
  32. POMALYST [Suspect]
     Active Substance: POMALIDOMIDE
     Route: 048
     Dates: start: 20221104
  33. POMALYST [Suspect]
     Active Substance: POMALIDOMIDE
     Route: 048
     Dates: start: 20200327, end: 20200421
  34. REVLIMIDd [Concomitant]
     Indication: Product used for unknown indication
     Route: 048
     Dates: start: 20190729, end: 20190912
  35. REVLIMIDd [Concomitant]
     Route: 048
     Dates: start: 20190912, end: 20191011
  36. REVLIMIDd [Concomitant]
     Route: 048
     Dates: start: 20191011, end: 20191108
  37. REVLIMIDd [Concomitant]
     Route: 048
     Dates: start: 20191108, end: 20191111
  38. REVLIMIDd [Concomitant]
     Route: 048
     Dates: start: 20191111, end: 20191210
  39. REVLIMIDd [Concomitant]
     Route: 048
     Dates: start: 20191210, end: 20200327
  40. REVLIMIDd [Concomitant]
     Route: 048
     Dates: start: 20190207, end: 20190729
  41. DARZALEX [Concomitant]
     Active Substance: DARATUMUMAB
     Route: 042
  42. NINLARO [Concomitant]
     Active Substance: IXAZOMIB CITRATE
     Route: 048
     Dates: start: 20210427, end: 20210522
  43. NINLARO [Concomitant]
     Active Substance: IXAZOMIB CITRATE
     Route: 048
     Dates: start: 20210823, end: 20210824
  44. NITROGLYCERIN [Concomitant]
     Active Substance: NITROGLYCERIN
     Route: 060
  45. TYLENOL [Concomitant]
     Active Substance: ACETAMINOPHEN
     Dates: start: 20200331
  46. ONDANSETRON [Concomitant]
     Active Substance: ONDANSETRON
     Dates: start: 20210331
  47. ACYCLOVIR [Concomitant]
     Active Substance: ACYCLOVIR
     Dosage: TWICW DAILY
     Route: 048
     Dates: start: 20200326
  48. VITAMIN B12 [Concomitant]
     Active Substance: CYANOCOBALAMIN
     Route: 048
  49. VITAMIN B6 [Concomitant]
     Active Substance: PYRIDOXINE HYDROCHLORIDE
     Route: 048
  50. ATORVASTATIN CALCIUM [Concomitant]
     Active Substance: ATORVASTATIN CALCIUM
     Route: 048
     Dates: start: 20200326
  51. ATORVASTATIN CALCIUM [Concomitant]
     Active Substance: ATORVASTATIN CALCIUM
     Route: 048
     Dates: start: 20200326
  52. ATORVASTATIN CALCIUM [Concomitant]
     Active Substance: ATORVASTATIN CALCIUM
     Route: 048
     Dates: start: 20200326
  53. CYCLOPHOSPHAMIDE [Concomitant]
     Active Substance: CYCLOPHOSPHAMIDE
     Dosage: 50 CAPSULE
     Route: 048
     Dates: start: 20190202, end: 20190225
  54. CYCLOPHOSPHAMIDE [Concomitant]
     Active Substance: CYCLOPHOSPHAMIDE
     Route: 048
     Dates: start: 20190121, end: 20190202
  55. HYDROCODONE [Concomitant]
     Active Substance: HYDROCODONE
     Dosage: 2.25-325
  56. LOVASTATIN [Concomitant]
     Active Substance: LOVASTATIN
     Dates: start: 20190208, end: 20190225
  57. METOPROLOL TARTRATE [Concomitant]
     Active Substance: METOPROLOL TARTRATE
     Dates: start: 20190208, end: 20190225
  58. PLAVIX [Concomitant]
     Active Substance: CLOPIDOGREL BISULFATE
     Route: 048
     Dates: start: 20190706
  59. ASPIRIN [Concomitant]
     Active Substance: ASPIRIN
     Dosage: TWICE WEEKLY
     Route: 048
  60. DEXAMETHASONE [Concomitant]
     Active Substance: DEXAMETHASONE
     Dosage: WEEKLY
     Route: 048
     Dates: start: 20190607, end: 20190611
  61. ZYRTEC [Concomitant]
     Active Substance: CETIRIZINE HYDROCHLORIDE
     Dates: start: 20190607, end: 20200203
  62. NIFEDIPINE [Concomitant]
     Active Substance: NIFEDIPINE
     Dates: start: 20190404, end: 20200331

REACTIONS (1)
  - Neutropenia [Recovering/Resolving]

NARRATIVE: CASE EVENT DATE: 20221110
